FAERS Safety Report 6812690-4 (Version None)
Quarter: 2010Q3

REPORT INFORMATION
  Report Type: 
  Country: None (occurrence: None)
  Receive Date: 20100701
  Receipt Date: 20100624
  Transmission Date: 20110219
  Serious: Yes (Other)
  Sender: FDA-Public Use
  Company Number: NL-ROCHE-711637

PATIENT
  Sex: Male
  Weight: 86 kg

DRUGS (1)
  1. PEGASYS [Suspect]
     Route: 058
     Dates: start: 20100111, end: 20100531

REACTIONS (1)
  - ALVEOLITIS ALLERGIC [None]
